FAERS Safety Report 18169868 (Version 1)
Quarter: 2020Q3

REPORT INFORMATION
  Report Type: Spontaneous
  Country: CA (occurrence: CA)
  Receive Date: 20200819
  Receipt Date: 20200819
  Transmission Date: 20201103
  Serious: Yes (Other)
  Sender: FDA-Public Use
  Company Number: CA-ACCORD-195915

PATIENT
  Age: 68 Year
  Sex: Female

DRUGS (9)
  1. PREDNISONE. [Concomitant]
     Active Substance: PREDNISONE
  2. WARFARIN [Suspect]
     Active Substance: WARFARIN
     Indication: PERIPHERAL VASCULAR DISORDER
  3. ASACOL [Concomitant]
     Active Substance: MESALAMINE
  4. FOLIC ACID. [Concomitant]
     Active Substance: FOLIC ACID
  5. METHOTREXATE. [Suspect]
     Active Substance: METHOTREXATE
     Indication: PRODUCT USED FOR UNKNOWN INDICATION
     Dosage: 1 EVERY 1 WEEKS
     Route: 048
  6. SULFASALAZINE. [Suspect]
     Active Substance: SULFASALAZINE
     Indication: PRODUCT USED FOR UNKNOWN INDICATION
  7. ERGOCALCIFEROL. [Concomitant]
     Active Substance: ERGOCALCIFEROL
  8. CALCIUM CARBONATE/CALCIUM LACTOGLUCONATE [Concomitant]
     Active Substance: CALCIUM CARBONATE\CALCIUM LACTATE GLUCONATE
  9. HYDROXYCHLOROQUINE [Concomitant]
     Active Substance: HYDROXYCHLOROQUINE

REACTIONS (3)
  - Gastrointestinal wall thickening [Unknown]
  - Intestinal obstruction [Unknown]
  - Intestinal stenosis [Unknown]
